FAERS Safety Report 7835475 (Version 5)
Quarter: 2012Q4

REPORT INFORMATION
  Report Type: Report from Study
  Country: BE (occurrence: BE)
  Receive Date: 20110202
  Receipt Date: 20121121
  Transmission Date: 20130627
  Serious: Yes (Life-Threatening, Hospitalization, Other)
  Sender: FDA-Public Use
  Company Number: BE-MERCK-2011SP001626

PATIENT
  Age: 37 Year
  Sex: Male

DRUGS (11)
  1. BOCEPREVIR [Suspect]
     Indication: CHRONIC HEPATITIS C
     Dosage: 800 mg, TID
     Route: 048
     Dates: start: 20100311, end: 20110107
  2. PEGINTRON [Suspect]
     Indication: CHRONIC HEPATITIS C
     Dosage: 120 micrograms, QW
     Route: 048
     Dates: start: 20100211, end: 20110106
  3. REBETOL [Suspect]
     Indication: CHRONIC HEPATITIS C
     Dosage: 600 mg, BID
     Route: 048
     Dates: start: 20100211, end: 20110107
  4. SIPRALEXA [Concomitant]
  5. EPIVIR [Concomitant]
  6. INVIRASE [Concomitant]
  7. REYATAZ [Concomitant]
  8. NORVIR [Concomitant]
  9. IMODIUM [Concomitant]
  10. XANAX [Concomitant]
  11. STILNOCT [Concomitant]

REACTIONS (4)
  - Deep vein thrombosis [Recovering/Resolving]
  - Pulmonary embolism [Recovering/Resolving]
  - Suicide attempt [Recovered/Resolved]
  - Depression [Recovered/Resolved]
